FAERS Safety Report 9713986 (Version 1)
Quarter: 2013Q4

REPORT INFORMATION
  Report Type: Spontaneous
  Country: US (occurrence: US)
  Receive Date: 20131126
  Receipt Date: 20131126
  Transmission Date: 20140711
  Serious: No
  Sender: FDA-Public Use
  Company Number: US-GILEAD-2008-0018467

PATIENT
  Sex: Female
  Weight: 56.7 kg

DRUGS (6)
  1. LETAIRIS [Suspect]
     Indication: PULMONARY ARTERIAL HYPERTENSION
     Route: 048
     Dates: start: 20080724
  2. ALBUTEROL [Concomitant]
  3. DIAZEPAM [Concomitant]
  4. BONIVA [Concomitant]
  5. GENEBS [Concomitant]
  6. MULTIVITAMIN [Concomitant]

REACTIONS (2)
  - Ear congestion [None]
  - Nasal congestion [None]
